FAERS Safety Report 5628552-4 (Version None)
Quarter: 2008Q1

REPORT INFORMATION
  Report Type: 
  Country: None (occurrence: None)
  Receive Date: 20080215
  Receipt Date: 20080206
  Transmission Date: 20080703
  Serious: Yes (Hospitalization, Disabling)
  Sender: FDA-Public Use
  Company Number: US-MERCK-0705USA05066

PATIENT
  Age: 49 Year
  Sex: Female
  Weight: 73 kg

DRUGS (9)
  1. FOSAMAX [Suspect]
     Indication: OSTEOPOROSIS
     Route: 048
     Dates: start: 19950101, end: 20060101
  2. FOSAMAX [Suspect]
     Route: 048
     Dates: start: 20060224
  3. CLONAZEPAM [Concomitant]
     Route: 065
  4. CELEXA [Concomitant]
     Route: 065
  5. ZYRTEC [Concomitant]
     Route: 065
  6. BUSPAR [Concomitant]
     Route: 065
  7. METHYLPHENIDATE [Concomitant]
     Route: 065
  8. [THERAPY UNSPECIFIED] [Concomitant]
     Route: 065
  9. LO/OVRAL [Concomitant]
     Route: 065

REACTIONS (28)
  - ABSCESS [None]
  - ADVERSE EVENT [None]
  - BACK PAIN [None]
  - BIPOLAR DISORDER [None]
  - BONE DISORDER [None]
  - CARPAL TUNNEL SYNDROME [None]
  - CRANIAL NERVE DISORDER [None]
  - DEPRESSION [None]
  - EAR PAIN [None]
  - ESSENTIAL HYPERTENSION [None]
  - EYE INFECTION BACTERIAL [None]
  - EYE IRRITATION [None]
  - GASTROOESOPHAGEAL REFLUX DISEASE [None]
  - GENERALISED ANXIETY DISORDER [None]
  - GOITRE [None]
  - HYPERCHOLESTEROLAEMIA [None]
  - JAW DISORDER [None]
  - MAJOR DEPRESSION [None]
  - MENTAL DISORDER [None]
  - OESOPHAGITIS [None]
  - ORAL DISORDER [None]
  - ORAL INFECTION [None]
  - ORAL PAIN [None]
  - PAIN IN JAW [None]
  - PANIC ATTACK [None]
  - PSYCHOTIC DISORDER [None]
  - PYREXIA [None]
  - TEMPOROMANDIBULAR JOINT SYNDROME [None]
